FAERS Safety Report 8148170-6 (Version None)
Quarter: 2012Q1

REPORT INFORMATION
  Report Type: 
  Country: None (occurrence: None)
  Receive Date: 20120218
  Receipt Date: 20110523
  Transmission Date: 20120608
  Serious: No
  Sender: FDA-Public Use
  Company Number: US-ALLERGAN-1013898US

PATIENT
  Age: 20 Year
  Sex: Female

DRUGS (2)
  1. BOTULINUM TOXIN TYPE A [Suspect]
     Indication: DYSTONIA
     Dosage: 700 UNITS, SINGLE
     Route: 030
     Dates: start: 20100907, end: 20100907
  2. BOTULINUM TOXIN TYPE A [Suspect]
     Dosage: 300 UNITS, SINGLE
     Route: 030
     Dates: start: 20110106, end: 20110106

REACTIONS (2)
  - ASTHENIA [None]
  - HYPOAESTHESIA [None]
